FAERS Safety Report 9015459 (Version 1)
Quarter: 2013Q1

REPORT INFORMATION
  Report Type: Spontaneous
  Country: US (occurrence: None)
  Receive Date: 20130102
  Receipt Date: 20130102
  Transmission Date: 20140127
  Serious: Yes (Death, Hospitalization, Other)
  Sender: FDA-Public Use
  Company Number: 2012P1067902

PATIENT
  Age: 63 Year
  Sex: Female
  Weight: 113 kg

DRUGS (5)
  1. CLINDAMYCIN [Suspect]
     Indication: POST PROCEDURAL INFECTION
  2. CLINDAMYCIN [Suspect]
     Indication: STAPHYLOCOCCAL INFECTION
  3. LEVOTHYROXINE [Concomitant]
  4. ATORVASTATIN [Concomitant]
  5. ACETAMINOPHEN-HYDROCODONE [Concomitant]

REACTIONS (10)
  - Drug reaction with eosinophilia and systemic symptoms [None]
  - Renal tubular necrosis [None]
  - Glomerulonephritis [None]
  - Renal failure acute [None]
  - Pleural effusion [None]
  - Cholelithiasis [None]
  - Pancreatitis [None]
  - Multi-organ failure [None]
  - Metabolic acidosis [None]
  - International normalised ratio increased [None]
